FAERS Safety Report 8026880-9 (Version None)
Quarter: 2012Q1

REPORT INFORMATION
  Report Type: 
  Country: None (occurrence: None)
  Receive Date: 20120106
  Receipt Date: 20120103
  Transmission Date: 20120608
  Serious: Yes (Other)
  Sender: FDA-Public Use
  Company Number: US-PFIZER INC-2011283261

PATIENT
  Sex: Female
  Weight: 78.005 kg

DRUGS (11)
  1. PROZAC [Suspect]
     Indication: DEPRESSION
     Dosage: 80 MG, DAILY
     Dates: start: 20090101
  2. LAMICTAL [Suspect]
     Indication: ANXIETY
  3. EFFEXOR XR [Suspect]
     Indication: DEPRESSION
     Dosage: 150 MG, 1X/DAY
     Route: 048
     Dates: start: 20090101
  4. NASONEX [Concomitant]
     Indication: RHINITIS ALLERGIC
     Dosage: UNK
     Dates: start: 20090711
  5. EFFEXOR XR [Suspect]
     Indication: OBSESSIVE-COMPULSIVE DISORDER
  6. PROZAC [Suspect]
     Indication: OBSESSIVE-COMPULSIVE DISORDER
  7. LAMICTAL [Suspect]
     Indication: OBSESSIVE-COMPULSIVE DISORDER
  8. EFFEXOR XR [Suspect]
     Indication: ANXIETY
  9. KLONOPIN [Concomitant]
     Indication: ANXIETY
     Dosage: 0.5 MG, AS NEEDED
     Dates: start: 20080926
  10. PROZAC [Suspect]
     Indication: ANXIETY
  11. LAMICTAL [Suspect]
     Indication: DEPRESSION
     Dosage: 200 MG, DAILY
     Dates: start: 20090101

REACTIONS (3)
  - WEIGHT INCREASED [None]
  - WEIGHT DECREASED [None]
  - HYPERTENSION [None]
